FAERS Safety Report 8690943 (Version 3)
Quarter: 2012Q4

REPORT INFORMATION
  Report Type: 
  Country: US (occurrence: US)
  Receive Date: 20120730
  Receipt Date: 20121205
  Transmission Date: 20130627
  Serious: Yes (Hospitalization, Other)
  Sender: FDA-Public Use
  Company Number: US-BIOGENIDEC-2012BI026310

PATIENT
  Age: 64 Year
  Sex: Male

DRUGS (2)
  1. AVONEX [Suspect]
     Indication: MULTIPLE SCLEROSIS
     Route: 030
     Dates: start: 19961201
  2. AVONEX [Suspect]
     Indication: MULTIPLE SCLEROSIS
     Route: 030

REACTIONS (8)
  - Infected skin ulcer [Recovered/Resolved]
  - Faecal incontinence [Recovered/Resolved]
  - Constipation [Recovered/Resolved]
  - Osteomyelitis [Not Recovered/Not Resolved]
  - Impaired healing [Recovered/Resolved]
  - Hypoaesthesia [Not Recovered/Not Resolved]
  - Radiation injury [Unknown]
  - Muscular weakness [Not Recovered/Not Resolved]
